FAERS Safety Report 4469080-1 (Version None)
Quarter: 2004Q4

REPORT INFORMATION
  Report Type: 
  Country: None (occurrence: None)
  Receive Date: 20041001
  Receipt Date: 20040923
  Transmission Date: 20050328
  Serious: Yes (Hospitalization)
  Sender: FDA-Public Use
  Company Number: 2004-09-1542

PATIENT

DRUGS (5)
  1. PEG-INTRON [Suspect]
     Dosage: SUBCUTANEOUS
     Route: 058
     Dates: start: 20040401
  2. REBETOL [Suspect]
     Dosage: ORAL
     Route: 048
     Dates: start: 20040401
  3. PROCRIT [Suspect]
  4. ALLOPURINOL [Suspect]
  5. ANTIHYPERTENSIVE AGENT (NOS) [Suspect]

REACTIONS (2)
  - DIZZINESS [None]
  - PARAESTHESIA [None]
